FAERS Safety Report 18889065 (Version 1)
Quarter: 2021Q1

REPORT INFORMATION
  Report Type: Spontaneous
  Country: US (occurrence: US)
  Receive Date: 20210212
  Receipt Date: 20210212
  Transmission Date: 20210420
  Serious: No
  Sender: FDA-Public Use
  Company Number: US-ROCHE-2721114

PATIENT
  Sex: Female

DRUGS (1)
  1. ROZLYTREK [Suspect]
     Active Substance: ENTRECTINIB
     Indication: UTERINE CANCER
     Dosage: DAILY; ONGOING:YES
     Route: 065
     Dates: start: 20201120

REACTIONS (5)
  - Off label use [Unknown]
  - Feeling drunk [Unknown]
  - Intentional product use issue [Unknown]
  - Vomiting [Unknown]
  - Taste disorder [Unknown]
